FAERS Safety Report 23907391 (Version 1)
Quarter: 2024Q2

REPORT INFORMATION
  Report Type: Spontaneous
  Country: US (occurrence: US)
  Receive Date: 20240528
  Receipt Date: 20240528
  Transmission Date: 20240716
  Serious: No
  Sender: FDA-Public Use
  Company Number: US-BEH-2024172298

PATIENT
  Age: 56 Year
  Sex: Female

DRUGS (1)
  1. PRIVIGEN [Suspect]
     Active Substance: HUMAN IMMUNOGLOBULIN G
     Indication: Autoimmune disorder
     Route: 065

REACTIONS (4)
  - Skin exfoliation [Unknown]
  - Dandruff [Unknown]
  - Acne [Unknown]
  - Blister [Unknown]
